FAERS Safety Report 18948949 (Version 1)
Quarter: 2021Q1

REPORT INFORMATION
  Report Type: Spontaneous
  Country: US (occurrence: US)
  Receive Date: 20210227
  Receipt Date: 20210227
  Transmission Date: 20210420
  Serious: No
  Sender: FDA-Public Use
  Company Number: NVSC2021US042386

PATIENT
  Age: 73 Year
  Sex: Male

DRUGS (1)
  1. DICLOFENAC SODIUM. [Suspect]
     Active Substance: DICLOFENAC SODIUM
     Indication: PAIN
     Dosage: UNK
     Route: 065
     Dates: start: 202102, end: 20210218

REACTIONS (2)
  - Product use in unapproved indication [Unknown]
  - Erythema [Unknown]

NARRATIVE: CASE EVENT DATE: 202102
